FAERS Safety Report 21480708 (Version 2)
Quarter: 2022Q4

REPORT INFORMATION
  Report Type: Report from Study
  Country: CA (occurrence: CA)
  Receive Date: 20221019
  Receipt Date: 20221128
  Transmission Date: 20230113
  Serious: Yes (Hospitalization)
  Sender: FDA-Public Use
  Company Number: CA-NOVARTISPH-NVSC2022CA232323

PATIENT
  Age: 81 Year
  Sex: Male

DRUGS (2)
  1. ERELZI [Suspect]
     Active Substance: ETANERCEPT-SZZS
     Indication: Ankylosing spondylitis
     Dosage: 50 MG
     Route: 058
     Dates: start: 20190828
  2. ERELZI [Suspect]
     Active Substance: ETANERCEPT-SZZS
     Dosage: 60 MG (EVERY 2 WEEKS)
     Route: 058

REACTIONS (5)
  - Cerebrovascular accident [Unknown]
  - Cardiac failure [Unknown]
  - COVID-19 [Unknown]
  - Pneumonia [Unknown]
  - COVID-19 pneumonia [Unknown]

NARRATIVE: CASE EVENT DATE: 20220215
